FAERS Safety Report 11048609 (Version 1)
Quarter: 2015Q2

REPORT INFORMATION
  Report Type: Spontaneous
  Country: IE (occurrence: IE)
  Receive Date: 20150420
  Receipt Date: 20150420
  Transmission Date: 20150821
  Serious: Yes (Hospitalization)
  Sender: FDA-Public Use
  Company Number: IE-GLAXOSMITHKLINE INC.-IE2015GSK053102

PATIENT
  Sex: Male

DRUGS (1)
  1. COMBODART [Suspect]
     Active Substance: DUTASTERIDE\TAMSULOSIN
     Indication: BENIGN PROSTATIC HYPERPLASIA
     Dosage: UNK
     Dates: start: 20140514, end: 20150210

REACTIONS (5)
  - Orthostatic hypotension [Recovered/Resolved]
  - Urinary tract infection [Unknown]
  - Abdominal pain [Unknown]
  - Hypotension [Unknown]
  - Dizziness [Recovered/Resolved]
